FAERS Safety Report 8176913-4 (Version None)
Quarter: 2012Q1

REPORT INFORMATION
  Report Type: 
  Country: None (occurrence: None)
  Receive Date: 20120301
  Receipt Date: 20120222
  Transmission Date: 20120608
  Serious: Yes (Other)
  Sender: FDA-Public Use
  Company Number: US-B.I. PHARMACEUTICALS,INC./RIDGEFIELD-2012-EU-01133GD

PATIENT

DRUGS (4)
  1. CLONIDINE [Suspect]
     Route: 037
  2. HYDROMORPHONE HCL [Suspect]
     Dosage: POCKET FILL DURING PUMP REFILL
     Route: 037
  3. HYDROMORPHONE HCL [Suspect]
  4. CLONIDINE [Suspect]
     Dosage: POCKET FILL DURING PUMP REFILL

REACTIONS (4)
  - RESPIRATORY DEPRESSION [None]
  - DRUG ADMINISTERED AT INAPPROPRIATE SITE [None]
  - SEDATION [None]
  - HYPOTENSION [None]
